FAERS Safety Report 7535718-5 (Version None)
Quarter: 2011Q2

REPORT INFORMATION
  Report Type: 
  Country: None (occurrence: None)
  Receive Date: 20110602
  Receipt Date: 20110523
  Transmission Date: 20111010
  Serious: Yes (Hospitalization, Other)
  Sender: FDA-Public Use
  Company Number: US-1186122

PATIENT
  Sex: Female
  Weight: 88.4514 kg

DRUGS (6)
  1. SYSTANE EYE DROPS [Suspect]
     Indication: DRY EYE
     Dosage: (1 DROP AS NEEDED OPHTHALMIC)
     Route: 047
     Dates: start: 20100101, end: 20110317
  2. RESTASIS [Suspect]
     Indication: DRY EYE
     Dosage: (1 DROP WHEN NEEDED OPHTHALMIC)
     Route: 047
     Dates: start: 20100501, end: 20110317
  3. VITAMIN D [Concomitant]
  4. REFRESH LIQUIGEL [Concomitant]
  5. LOPRESSOR [Concomitant]
  6. ECHINACEA [Concomitant]

REACTIONS (1)
  - CHEST DISCOMFORT [None]
